FAERS Safety Report 19163327 (Version 1)
Quarter: 2021Q2

REPORT INFORMATION
  Report Type: Spontaneous
  Country: FR (occurrence: FR)
  Receive Date: 20210421
  Receipt Date: 20210421
  Transmission Date: 20210717
  Serious: Yes (Hospitalization, Other)
  Sender: FDA-Public Use
  Company Number: FR-GLAXOSMITHKLINE-FR2021087409

PATIENT
  Age: 60 Year
  Sex: Male
  Weight: 89 kg

DRUGS (4)
  1. CLOMIPRAMINE [Suspect]
     Active Substance: CLOMIPRAMINE
     Indication: DEPRESSION
     Dosage: 20 MG, QD
     Route: 048
     Dates: start: 20210126
  2. LOXAPAC [Suspect]
     Active Substance: LOXAPINE
     Indication: PERSONALITY DISORDER
     Dosage: 275 MG, QD
     Route: 048
  3. LAMOTRIGINE. [Suspect]
     Active Substance: LAMOTRIGINE
     Indication: PERSONALITY DISORDER
     Dosage: 150 MG, QD
     Route: 048
     Dates: start: 20210215
  4. ALIMEMAZINE [Suspect]
     Active Substance: TRIMEPRAZINE
     Indication: PERSONALITY DISORDER
     Dosage: 20 MG, QD
     Route: 048
     Dates: start: 20210126

REACTIONS (1)
  - Serotonin syndrome [Recovered/Resolved]

NARRATIVE: CASE EVENT DATE: 20210217
